FAERS Safety Report 9772177 (Version 3)
Quarter: 2014Q2

REPORT INFORMATION
  Report Type: Report from Study
  Country: CA (occurrence: CA)
  Receive Date: 20131219
  Receipt Date: 20140527
  Transmission Date: 20141212
  Serious: Yes (Hospitalization)
  Sender: FDA-Public Use
  Company Number: CA-TEVA-436498USA

PATIENT
  Age: 72 Year
  Sex: Female
  Weight: 52.7 kg

DRUGS (14)
  1. BENDAMUSTINE [Suspect]
     Indication: CHRONIC LYMPHOCYTIC LEUKAEMIA
     Route: 042
     Dates: start: 20130918
  2. BENDAMUSTINE [Suspect]
     Route: 042
     Dates: start: 20130919
  3. RITUXIMAB [Suspect]
     Indication: CHRONIC LYMPHOCYTIC LEUKAEMIA
     Dosage: 514.2857 MILLIGRAM DAILY; UNKNOWN/D
     Route: 042
     Dates: start: 20130917
  4. IBRUTINIB/ PLACEBO [Suspect]
     Indication: CHRONIC LYMPHOCYTIC LEUKAEMIA
     Route: 048
     Dates: start: 20130918
  5. IBRUTINIB/ PLACEBO [Suspect]
     Route: 048
     Dates: start: 20130919
  6. SALBUTAMOL [Concomitant]
     Indication: BRONCHITIS
  7. IMMUNOGLOBULIN [Concomitant]
     Indication: HYPOGAMMAGLOBULINAEMIA
     Route: 042
  8. DALTEPARIN [Concomitant]
     Indication: THROMBOSIS PROPHYLAXIS
     Dosage: 5000 IU (INTERNATIONAL UNIT) DAILY;
     Route: 058
  9. LEVOFLOXACIN [Concomitant]
     Indication: NASOPHARYNGITIS
     Dosage: 500 MILLIGRAM DAILY;
     Route: 048
     Dates: start: 20130917
  10. LEVOFLOXACIN [Concomitant]
     Indication: PRODUCTIVE COUGH
  11. ACETAMINOPHEN [Concomitant]
     Indication: PREMEDICATION
     Route: 048
  12. DIPHENHYDRAMINE [Concomitant]
     Indication: PREMEDICATION
     Route: 042
  13. ONDANSETRON [Concomitant]
     Indication: PREMEDICATION
     Dosage: 8 MILLIGRAM DAILY;
     Route: 048
  14. DEXAMETHASONE [Concomitant]
     Indication: PREMEDICATION
     Dosage: 8 MILLIGRAM DAILY;
     Route: 048

REACTIONS (2)
  - Tumour lysis syndrome [Recovered/Resolved]
  - Renal injury [Recovered/Resolved]
